FAERS Safety Report 7330169-0 (Version None)
Quarter: 2011Q1

REPORT INFORMATION
  Report Type: 
  Country: None (occurrence: None)
  Receive Date: 20110303
  Receipt Date: 20110228
  Transmission Date: 20110831
  Serious: Yes (Other)
  Sender: FDA-Public Use
  Company Number: US-RB-014649-10

PATIENT
  Age: 58 Year
  Sex: Male

DRUGS (1)
  1. SUBOXONE [Suspect]
     Indication: PRODUCT USED FOR UNKNOWN INDICATION
     Dosage: DOSING INFORMATION UNKNOWN
     Route: 065

REACTIONS (17)
  - INFECTION [None]
  - NAUSEA [None]
  - INJECTION SITE REACTION [None]
  - DEPRESSION [None]
  - TOBACCO USER [None]
  - CHEST PAIN [None]
  - PAIN IN EXTREMITY [None]
  - MUSCULOSKELETAL DISCOMFORT [None]
  - EMOTIONAL DISORDER [None]
  - RETCHING [None]
  - GOUT [None]
  - WEIGHT DECREASED [None]
  - CONVULSION [None]
  - INTENTIONAL DRUG MISUSE [None]
  - CARDIAC DISORDER [None]
  - SOMNOLENCE [None]
  - PRE-EXISTING CONDITION IMPROVED [None]
